FAERS Safety Report 17215850 (Version 3)
Quarter: 2020Q2

REPORT INFORMATION
  Report Type: Report from Study
  Country: US (occurrence: US)
  Receive Date: 20191230
  Receipt Date: 20200526
  Transmission Date: 20200713
  Serious: Yes (Hospitalization, Disabling, Other)
  Sender: FDA-Public Use
  Company Number: NVSC2019US081052

PATIENT
  Age: 66 Year
  Sex: Male

DRUGS (2)
  1. VITAMIN C [Concomitant]
     Active Substance: ASCORBIC ACID
     Indication: PRODUCT USED FOR UNKNOWN INDICATION
     Dosage: UNK
     Route: 065
  2. ENTRESTO [Suspect]
     Active Substance: SACUBITRIL\VALSARTAN
     Indication: CARDIAC FAILURE
     Dosage: 50 MG, BID (SACUBITRIL 24MG AND VALSARTAN 26MG)
     Route: 048
     Dates: start: 20191114

REACTIONS (13)
  - Fatigue [Recovering/Resolving]
  - Blister [Recovered/Resolved]
  - Dyspnoea [Recovering/Resolving]
  - Fluid retention [Recovering/Resolving]
  - Swelling [Unknown]
  - Weight increased [Recovering/Resolving]
  - Cardiac disorder [Recovering/Resolving]
  - Lung disorder [Recovering/Resolving]
  - Nasopharyngitis [Recovering/Resolving]
  - Peripheral swelling [Recovering/Resolving]
  - Lymphoedema [Recovering/Resolving]
  - Cough [Recovering/Resolving]
  - Productive cough [Recovering/Resolving]

NARRATIVE: CASE EVENT DATE: 201912
